FAERS Safety Report 16747631 (Version 1)
Quarter: 2019Q3

REPORT INFORMATION
  Report Type: Spontaneous
  Country: GB (occurrence: GB)
  Receive Date: 20190827
  Receipt Date: 20190827
  Transmission Date: 20191005
  Serious: Yes (Other)
  Sender: FDA-Public Use
  Company Number: GB-TEVA-2019-GB-1097241

PATIENT
  Age: 34 Year
  Sex: Female
  Weight: 92.3 kg

DRUGS (2)
  1. CLOTRIMAZOLE. [Suspect]
     Active Substance: CLOTRIMAZOLE
     Indication: VULVOVAGINAL CANDIDIASIS
     Dosage: 500 MILLIGRAM
     Dates: start: 20190726, end: 20190726
  2. FLUCLOXACILLIN [Concomitant]
     Active Substance: FLUCLOXACILLIN
     Route: 065

REACTIONS (4)
  - Vulvovaginal burning sensation [Recovering/Resolving]
  - Vulvovaginal pain [Recovering/Resolving]
  - Maternal exposure during pregnancy [Recovering/Resolving]
  - Vulvovaginal discomfort [Recovering/Resolving]

NARRATIVE: CASE EVENT DATE: 20190726
